FAERS Safety Report 4288965-2 (Version None)
Quarter: 2004Q1

REPORT INFORMATION
  Report Type: 
  Country: None (occurrence: None)
  Receive Date: 20040205
  Receipt Date: 20030430
  Transmission Date: 20041129
  Serious: Yes (Hospitalization)
  Sender: FDA-Public Use
  Company Number: ETHYOL-02379

PATIENT
  Age: 59 Year
  Sex: Female
  Weight: 50.3493 kg

DRUGS (8)
  1. ETHYOL [Suspect]
     Dosage: 500 MG, 1 IN 1 D, SUBCUTANEOUS
     Route: 058
     Dates: start: 20030422, end: 20030422
  2. NEURONTIN [Concomitant]
  3. OXYCODONE HCL [Concomitant]
  4. FLONASE [Concomitant]
  5. ZOFRAN [Concomitant]
  6. DECADRON [Concomitant]
  7. ZANTAC [Concomitant]
  8. BENADRYL [Concomitant]

REACTIONS (2)
  - BLOOD CALCIUM DECREASED [None]
  - HYPOTENSION [None]
